FAERS Safety Report 6959174-0 (Version None)
Quarter: 2010Q3

REPORT INFORMATION
  Report Type: 
  Country: None (occurrence: None)
  Receive Date: 20100831
  Receipt Date: 20100816
  Transmission Date: 20110219
  Serious: Yes (Other)
  Sender: FDA-Public Use
  Company Number: DE-GENENTECH-305899

PATIENT

DRUGS (1)
  1. RITUXIMAB [Suspect]
     Indication: B-CELL LYMPHOMA
     Dosage: UNK
     Route: 042

REACTIONS (31)
  - ANAPHYLACTIC REACTION [None]
  - ANGIOEDEMA [None]
  - ARRHYTHMIA [None]
  - ARTHRALGIA [None]
  - BLOOD BILIRUBIN INCREASED [None]
  - BRONCHOSPASM [None]
  - DIARRHOEA [None]
  - DISSEMINATED INTRAVASCULAR COAGULATION [None]
  - FATIGUE [None]
  - GENERAL PHYSICAL HEALTH DETERIORATION [None]
  - GRANULOCYTE COUNT [None]
  - HAEMOGLOBIN [None]
  - HEADACHE [None]
  - HYPERGLYCAEMIA [None]
  - HYPERSENSITIVITY [None]
  - HYPERTENSION [None]
  - HYPOTENSION [None]
  - INFECTION [None]
  - MUCOSAL INFLAMMATION [None]
  - MYALGIA [None]
  - NAUSEA [None]
  - NEUROTOXICITY [None]
  - OEDEMA PERIPHERAL [None]
  - PAIN [None]
  - PLATELET COUNT [None]
  - TOXIC NEUROPATHY [None]
  - TRANSAMINASES INCREASED [None]
  - TUMOUR LYSIS SYNDROME [None]
  - URTICARIA [None]
  - VOMITING [None]
  - WHITE BLOOD CELL COUNT [None]
